FAERS Safety Report 9278961 (Version 2)
Quarter: 2013Q2

REPORT INFORMATION
  Report Type: Spontaneous
  Country: US (occurrence: US)
  Receive Date: 20130508
  Receipt Date: 20130604
  Transmission Date: 20140414
  Serious: Yes (Hospitalization)
  Sender: FDA-Public Use
  Company Number: US-GLAXOSMITHKLINE-A1022712A

PATIENT
  Age: 58 Year
  Sex: Female
  Weight: 45 kg

DRUGS (10)
  1. PROMACTA [Suspect]
     Indication: THROMBOCYTOPENIA
     Dosage: 25MG PER DAY
     Route: 048
     Dates: start: 20130418, end: 20130421
  2. PEGASYS [Concomitant]
     Dosage: 180MCG WEEKLY
     Dates: start: 20130408, end: 20130421
  3. RIBAVIRIN [Concomitant]
     Dosage: 600MG TWICE PER DAY
     Dates: start: 20130408, end: 20130421
  4. INCIVEK [Concomitant]
     Dosage: 2TAB THREE TIMES PER DAY
     Dates: start: 20130408, end: 20130421
  5. MIRTAZAPINE [Concomitant]
  6. NADOLOL [Concomitant]
  7. FLUOXETINE [Concomitant]
  8. AMLODIPINE [Concomitant]
  9. LOSARTAN [Concomitant]
  10. HCTZ [Concomitant]

REACTIONS (11)
  - Ocular icterus [Recovered/Resolved]
  - Jaundice [Recovered/Resolved]
  - Blood bilirubin increased [Recovered/Resolved]
  - Liver function test abnormal [Recovered/Resolved]
  - Blood urea increased [Recovered/Resolved]
  - Blood creatinine increased [Recovered/Resolved]
  - Fatigue [Recovered/Resolved]
  - Nausea [Recovered/Resolved]
  - Haemoglobin decreased [Recovered/Resolved]
  - Platelet count decreased [Recovered/Resolved]
  - Aspartate aminotransferase increased [Recovered/Resolved]
